FAERS Safety Report 17191155 (Version 3)
Quarter: 2022Q2

REPORT INFORMATION
  Report Type: Spontaneous
  Country: US (occurrence: US)
  Receive Date: 20191223
  Receipt Date: 20220518
  Transmission Date: 20220720
  Serious: Yes (Other)
  Sender: FDA-Public Use
  Company Number: US-GLENMARK PHARMACEUTICALS-2019GMK043483

PATIENT

DRUGS (6)
  1. ZONISAMIDE [Suspect]
     Active Substance: ZONISAMIDE
     Indication: Seizure
     Dosage: 100 MG, HS (ONCE AT NIGHT)
     Route: 048
     Dates: end: 2019
  2. ZONISAMIDE [Suspect]
     Active Substance: ZONISAMIDE
     Dosage: 50 MG, HS
     Route: 048
     Dates: start: 2019
  3. ZONISAMIDE [Suspect]
     Active Substance: ZONISAMIDE
     Dosage: UNK (NEW DOSE) 2 WEEKS AGO
     Route: 065
     Dates: start: 201910
  4. OXCARBAZEPINE [Concomitant]
     Active Substance: OXCARBAZEPINE
     Indication: Product used for unknown indication
     Dosage: UNK (TOTAL DAILY DOSE 300 MG)
     Route: 065
     Dates: start: 20191116
  5. HYDROXYZINE [Concomitant]
     Active Substance: HYDROXYZINE HYDROCHLORIDE
     Indication: Anxiety
     Dosage: UNK (EVERY 6 HOURS)
     Route: 065
     Dates: start: 20191002
  6. ONDANSETRON [Concomitant]
     Active Substance: ONDANSETRON
     Indication: Nausea
     Dosage: UNK (TOTOAL DAILY DOSE 4 MG)
     Route: 065
     Dates: start: 20191002, end: 20191004

REACTIONS (21)
  - Cardiac flutter [Recovered/Resolved]
  - Arrhythmia [Recovered/Resolved]
  - Cholestasis [Unknown]
  - Jaundice cholestatic [Unknown]
  - Rectal haemorrhage [Unknown]
  - Melaena [Unknown]
  - Hallucination [Not Recovered/Not Resolved]
  - Gastrooesophageal reflux disease [Unknown]
  - Abdominal discomfort [Not Recovered/Not Resolved]
  - Taste disorder [Recovered/Resolved]
  - Sensory disturbance [Unknown]
  - Tinnitus [Not Recovered/Not Resolved]
  - Palpitations [Recovered/Resolved]
  - Muscle spasms [Unknown]
  - Gastritis [Unknown]
  - Gastroenteritis [Unknown]
  - Stomatitis [Unknown]
  - Colitis [Unknown]
  - Hypertension [Unknown]
  - Dehydration [Unknown]
  - Product taste abnormal [Unknown]

NARRATIVE: CASE EVENT DATE: 20190815
